FAERS Safety Report 4291404-9 (Version None)
Quarter: 2004Q1

REPORT INFORMATION
  Report Type: 
  Country: None (occurrence: None)
  Receive Date: 20040211
  Receipt Date: 20030908
  Transmission Date: 20041129
  Serious: No
  Sender: FDA-Public Use
  Company Number: US-BRISTOL-MYERS SQUIBB COMPANY-12376653

PATIENT
  Age: 77 Year
  Sex: Female
  Weight: 58 kg

DRUGS (2)
  1. CEFZIL [Suspect]
     Indication: CYSTITIS
     Route: 048
     Dates: start: 20030829, end: 20030830
  2. MULTIVITAMIN [Concomitant]

REACTIONS (2)
  - EYE SWELLING [None]
  - RASH [None]
